FAERS Safety Report 16499583 (Version 1)
Quarter: 2019Q2

REPORT INFORMATION
  Report Type: Spontaneous
  Country: US (occurrence: US)
  Receive Date: 20190520
  Receipt Date: 20190520
  Transmission Date: 20190711
  Serious: Yes (Hospitalization)
  Sender: FDA-Public Use
  Company Number: None

PATIENT
  Age: 63 Year
  Sex: Male
  Weight: 109 kg

DRUGS (9)
  1. TRIPHOCAPS [Concomitant]
  2. DEPAKOTE [Concomitant]
     Active Substance: DIVALPROEX SODIUM
  3. AMOXCILLIN [Concomitant]
     Active Substance: AMOXICILLIN
  4. PROTONIX [Concomitant]
     Active Substance: PANTOPRAZOLE SODIUM
  5. CARBAZABIN [Concomitant]
  6. SIMVASTATIN. [Concomitant]
     Active Substance: SIMVASTATIN
  7. REVUDA [Concomitant]
  8. CARBAMAZEPINE 200MG [Suspect]
     Active Substance: CARBAMAZEPINE
     Indication: BIPOLAR DISORDER
     Dosage: ?          QUANTITY:90 DF DOSAGE FORM;?
     Route: 048
     Dates: start: 20190418
  9. ALLOPURINOL. [Concomitant]
     Active Substance: ALLOPURINOL

REACTIONS (8)
  - Skin discolouration [None]
  - Muscle spasms [None]
  - Myalgia [None]
  - Fall [None]
  - Poor quality sleep [None]
  - Impaired driving ability [None]
  - Musculoskeletal pain [None]
  - Sleep apnoea syndrome [None]

NARRATIVE: CASE EVENT DATE: 20190421
